FAERS Safety Report 17805684 (Version 2)
Quarter: 2022Q3

REPORT INFORMATION
  Report Type: Other
  Country: US (occurrence: None)
  Receive Date: 20200519
  Receipt Date: 20220728
  Transmission Date: 20221027
  Serious: Yes (Other)
  Sender: FDA-Public Use
  Company Number: US-ROCHE-2602071

PATIENT
  Age: 50 Year
  Sex: Female
  Weight: 93.978 kg

DRUGS (6)
  1. OCREVUS [Suspect]
     Active Substance: OCRELIZUMAB
     Indication: Relapsing-remitting multiple sclerosis
     Dosage: THEN 600 MG EVERY 6 MONTHS?DATE OF TREATMENT: 25/MAY/2018, 07/DEC/2018
     Route: 042
     Dates: start: 20170929
  2. SOLU-MEDROL [Suspect]
     Active Substance: METHYLPREDNISOLONE SODIUM SUCCINATE
     Indication: Product used for unknown indication
     Route: 042
     Dates: start: 2017
  3. BENADRYL [Concomitant]
     Active Substance: DIPHENHYDRAMINE HYDROCHLORIDE
     Route: 042
     Dates: start: 2017
  4. ATORVASTATIN [Concomitant]
     Active Substance: ATORVASTATIN
     Route: 048
  5. LISINOPRIL [Concomitant]
     Active Substance: LISINOPRIL
     Route: 048
  6. LISINOPRIL [Concomitant]
     Active Substance: LISINOPRIL
     Route: 048

REACTIONS (32)
  - Herpes zoster [Unknown]
  - Staphylococcal infection [Unknown]
  - Rash erythematous [Recovered/Resolved]
  - Infection [Recovered/Resolved]
  - Folliculitis [Recovered/Resolved]
  - Swelling [Recovered/Resolved]
  - Nasal ulcer [Recovered/Resolved]
  - Sleep paralysis [Unknown]
  - Dyspnoea [Unknown]
  - Oxygen saturation decreased [Unknown]
  - Erythema [Recovered/Resolved]
  - Retinal disorder [Not Recovered/Not Resolved]
  - Optic nerve disorder [Not Recovered/Not Resolved]
  - Eye disorder [Not Recovered/Not Resolved]
  - Multiple sclerosis [Unknown]
  - Memory impairment [Not Recovered/Not Resolved]
  - Visual impairment [Not Recovered/Not Resolved]
  - Asthenia [Recovered/Resolved]
  - Flushing [Recovered/Resolved]
  - Heart rate increased [Recovered/Resolved]
  - Hypotension [Recovered/Resolved]
  - Neck pain [Recovered/Resolved]
  - Fatigue [Not Recovered/Not Resolved]
  - Alopecia [Not Recovered/Not Resolved]
  - Nail ridging [Not Recovered/Not Resolved]
  - Electric shock sensation [Recovered/Resolved]
  - Feeling cold [Recovered/Resolved]
  - Off label use [Unknown]
  - Facial pain [Not Recovered/Not Resolved]
  - Discomfort [Recovered/Resolved]
  - Nasopharyngitis [Unknown]
  - Paraesthesia [Not Recovered/Not Resolved]

NARRATIVE: CASE EVENT DATE: 20171013
